FAERS Safety Report 12920804 (Version 1)
Quarter: 2016Q4

REPORT INFORMATION
  Report Type: Spontaneous
  Country: US (occurrence: US)
  Receive Date: 20161107
  Receipt Date: 20161107
  Transmission Date: 20170207
  Serious: Yes (Other)
  Sender: FDA-Public Use
  Company Number: None

PATIENT
  Age: 76 Year
  Sex: Female
  Weight: 49.5 kg

DRUGS (1)
  1. BENICAR [Suspect]
     Active Substance: OLMESARTAN MEDOXOMIL
     Indication: HYPERTENSION
     Dosage: ?          QUANTITY:30 TABLET(S);?
     Route: 048
     Dates: start: 20161023, end: 20161030

REACTIONS (5)
  - Product substitution issue [None]
  - Blood pressure increased [None]
  - Sleep disorder [None]
  - Drug ineffective [None]
  - Polyuria [None]

NARRATIVE: CASE EVENT DATE: 20161024
